FAERS Safety Report 18384797 (Version 2)
Quarter: 2023Q4

REPORT INFORMATION
  Report Type: Spontaneous
  Country: US (occurrence: US)
  Receive Date: 20201015
  Receipt Date: 20231202
  Transmission Date: 20240109
  Serious: Yes (Other)
  Sender: FDA-Public Use
  Company Number: US-BAYER-2020-221053

PATIENT
  Sex: Female

DRUGS (1)
  1. MIRENA [Suspect]
     Active Substance: LEVONORGESTREL
     Indication: Contraception
     Dosage: 20 ?G PER DAY CONTINUOUSLY
     Route: 015
     Dates: start: 201910, end: 20200813

REACTIONS (3)
  - Genital haemorrhage [None]
  - Medical device pain [None]
  - Polyp [None]
